FAERS Safety Report 24119192 (Version 1)
Quarter: 2024Q3

REPORT INFORMATION
  Report Type: Spontaneous
  Country: US (occurrence: None)
  Receive Date: 20240718
  Receipt Date: 20240718
  Transmission Date: 20241016
  Serious: Yes (Other)
  Sender: Public
  Company Number: None

PATIENT
  Age: 55 Year
  Sex: Female
  Weight: 63 kg

DRUGS (2)
  1. BRIXADI [Suspect]
     Active Substance: BUPRENORPHINE
     Indication: Drug use disorder
     Dosage: OTHER FREQUENCY : MONTHLY;?
     Route: 058
     Dates: start: 20240701, end: 20240717
  2. BRIXADI [Concomitant]
     Active Substance: BUPRENORPHINE
     Dates: start: 20240701, end: 20240718

REACTIONS (5)
  - Urticaria [None]
  - Eye swelling [None]
  - Swelling face [None]
  - Pruritus [None]
  - Eye pain [None]

NARRATIVE: CASE EVENT DATE: 20240701
